FAERS Safety Report 9859721 (Version 1)
Quarter: 2014Q1

REPORT INFORMATION
  Report Type: Spontaneous
  Country: DK (occurrence: FR)
  Receive Date: 20140131
  Receipt Date: 20140131
  Transmission Date: 20141002
  Serious: Yes (Life-Threatening)
  Sender: FDA-Public Use
  Company Number: FR-FRI-1000053299

PATIENT
  Age: 81 Year
  Sex: Female

DRUGS (8)
  1. ESCITALOPRAM [Suspect]
     Indication: PRODUCT USED FOR UNKNOWN INDICATION
     Route: 048
  2. ESCITALOPRAM [Suspect]
     Dosage: OVERDOSE WITH 24 TABLETS
     Route: 048
     Dates: start: 20130428, end: 20130428
  3. VICTAN [Suspect]
     Indication: PRODUCT USED FOR UNKNOWN INDICATION
     Route: 048
  4. VICTAN [Suspect]
     Dosage: OVERDOSE WITH 30 TABLETS
     Route: 048
     Dates: start: 20130428, end: 20130428
  5. VALDOXAN [Concomitant]
  6. KARDEGIC [Concomitant]
  7. FLECAINE [Concomitant]
  8. ALDACTAZINE [Concomitant]

REACTIONS (4)
  - Hypercapnic coma [Recovered/Resolved]
  - Respiratory arrest [Recovered/Resolved]
  - Electrocardiogram QT prolonged [Recovered/Resolved]
  - Overdose [Recovered/Resolved]
